FAERS Safety Report 5598636-8 (Version None)
Quarter: 2007Q4

REPORT INFORMATION
  Report Type: 
  Country: None (occurrence: None)
  Receive Date: 20071226
  Receipt Date: 20071016
  Transmission Date: 20080405
  Serious: No
  Sender: FDA-Public Use
  Company Number: 2007PV033587

PATIENT
  Age: 72 Year
  Sex: Female
  Weight: 102.0593 kg

DRUGS (4)
  1. SYMLIN [Suspect]
     Indication: TYPE 1 DIABETES MELLITUS
     Dosage: 120 MCG;TID;SC, 60 MCG; TID; SC
     Route: 058
     Dates: start: 20070201, end: 20070501
  2. SYMLIN [Suspect]
     Indication: TYPE 1 DIABETES MELLITUS
     Dosage: 120 MCG;TID;SC, 60 MCG; TID; SC
     Route: 058
     Dates: start: 20070501
  3. LANTUS [Concomitant]
  4. HUMALOG [Concomitant]

REACTIONS (1)
  - WRONG DRUG ADMINISTERED [None]
